FAERS Safety Report 4860101-0 (Version None)
Quarter: 2005Q4

REPORT INFORMATION
  Report Type: 
  Country: None (occurrence: None)
  Receive Date: 20051219
  Receipt Date: 20051208
  Transmission Date: 20060501
  Serious: Yes (Hospitalization, Other)
  Sender: FDA-Public Use
  Company Number: US-MERCK-0512USA01955

PATIENT
  Age: 74 Year
  Sex: Male
  Weight: 91 kg

DRUGS (7)
  1. VIOXX [Suspect]
     Indication: OSTEOARTHRITIS
     Route: 048
     Dates: start: 20011127, end: 20040901
  2. VIOXX [Suspect]
     Route: 065
     Dates: start: 19990827, end: 20011101
  3. VIOXX [Suspect]
     Route: 048
     Dates: start: 20020305
  4. PRINIVIL [Concomitant]
     Route: 065
  5. TOPROL-XL [Concomitant]
     Route: 065
  6. LASIX [Concomitant]
     Route: 065
  7. POTASSIUM (UNSPECIFIED) [Concomitant]
     Route: 065

REACTIONS (26)
  - ABDOMINAL PAIN UPPER [None]
  - ANAEMIA [None]
  - ARTERIOSCLEROSIS CORONARY ARTERY [None]
  - ASTHENIA [None]
  - BACK PAIN [None]
  - BRONCHITIS [None]
  - CARDIAC DISORDER [None]
  - CARDIAC FAILURE CONGESTIVE [None]
  - CARDIAC FLUTTER [None]
  - CARDIOVASCULAR DISORDER [None]
  - CAROTID ARTERY DISEASE [None]
  - CEREBROVASCULAR ACCIDENT [None]
  - DIZZINESS [None]
  - EAR INFECTION [None]
  - GASTROENTERITIS [None]
  - GINGIVAL INFECTION [None]
  - GLUCOSE TOLERANCE IMPAIRED [None]
  - GOUT [None]
  - HEADACHE [None]
  - HYPERTENSION [None]
  - PALPITATIONS [None]
  - PEPTIC ULCER [None]
  - PERONEAL NERVE PALSY [None]
  - PHARYNGITIS [None]
  - SEXUAL DYSFUNCTION [None]
  - UPPER RESPIRATORY TRACT INFECTION [None]
